FAERS Safety Report 16777086 (Version 1)
Quarter: 2019Q4

REPORT INFORMATION
  Report Type: Spontaneous
  Country: US (occurrence: US)
  Receive Date: 20190905
  Receipt Date: 20190905
  Transmission Date: 20200122
  Serious: Yes (Hospitalization)
  Sender: FDA-Public Use
  Company Number: None

PATIENT
  Age: 55 Year
  Sex: Female

DRUGS (7)
  1. COSENTYX [Suspect]
     Active Substance: SECUKINUMAB
     Indication: PSORIASIS
     Dosage: ?          OTHER FREQUENCY:EVERY 4 WEEKS;?
     Route: 058
     Dates: start: 20180319
  2. ALBUTEROL AER HFA [Concomitant]
  3. FLUCONAZOLE TAB 150 MG [Concomitant]
  4. AMOX/K CLAV TAB 875-125 [Concomitant]
  5. LOSARTAN POT TAB 100 MG [Concomitant]
     Active Substance: LOSARTAN POTASSIUM
  6. FOLIC ACID TAB 1000 MCG [Concomitant]
  7. TRAMADOL HCL TAB 50 MG [Concomitant]

REACTIONS (2)
  - Surgery [None]
  - Therapy cessation [None]
